FAERS Safety Report 9335111 (Version 1)
Quarter: 2013Q2

REPORT INFORMATION
  Report Type: Spontaneous
  Country: US (occurrence: US)
  Receive Date: 20130606
  Receipt Date: 20130606
  Transmission Date: 20140414
  Serious: Yes (Hospitalization)
  Sender: FDA-Public Use
  Company Number: US-GLAXOSMITHKLINE-A1025365A

PATIENT
  Age: 60 Year
  Sex: Female

DRUGS (13)
  1. ADVAIR [Suspect]
     Indication: ASTHMA
     Dosage: 1PUFF TWICE PER DAY
     Route: 055
  2. WELLBUTRIN [Concomitant]
  3. ZOLOFT [Concomitant]
  4. FELDENE [Concomitant]
  5. ZANAFLEX [Concomitant]
  6. LYRICA [Concomitant]
  7. ATENOLOL [Concomitant]
  8. TEGRETOL [Concomitant]
  9. FLEXERIL [Concomitant]
  10. XYZAL [Concomitant]
  11. ESTRADIOL [Concomitant]
  12. OXYCODONE [Concomitant]
  13. MORPHINE [Concomitant]

REACTIONS (3)
  - Myocardial infarction [Recovered/Resolved]
  - Dyspnoea [Recovered/Resolved]
  - Product quality issue [Unknown]
